FAERS Safety Report 7950004-7 (Version None)
Quarter: 2011Q4

REPORT INFORMATION
  Report Type: 
  Country: None (occurrence: None)
  Receive Date: 20111130
  Receipt Date: 20111121
  Transmission Date: 20120403
  Serious: Yes (Other)
  Sender: FDA-Public Use
  Company Number: US-ASTRAZENECA-2011SE55009

PATIENT
  Age: 38 Year
  Sex: Female

DRUGS (1)
  1. TOPROL-XL [Suspect]
     Route: 048

REACTIONS (12)
  - NEPHROLITHIASIS [None]
  - MALAISE [None]
  - HEART RATE INCREASED [None]
  - JAUNDICE [None]
  - INSOMNIA [None]
  - DRUG DOSE OMISSION [None]
  - THERAPEUTIC RESPONSE UNEXPECTED [None]
  - BLOOD PRESSURE INCREASED [None]
  - TEMPERATURE INTOLERANCE [None]
  - HEPATITIS C [None]
  - ASTHENIA [None]
  - FATIGUE [None]
